FAERS Safety Report 8020925-8 (Version None)
Quarter: 2011Q4

REPORT INFORMATION
  Report Type: 
  Country: None (occurrence: None)
  Receive Date: 20111229
  Receipt Date: 20111229
  Transmission Date: 20120403
  Serious: No
  Sender: FDA-Public Use
  Company Number: None

PATIENT
  Age: 62 Year
  Sex: Female
  Weight: 58.9676 kg

DRUGS (1)
  1. FEMARA [Suspect]
     Indication: BREAST CANCER
     Dosage: 1 DAILY DAILY ORAL
     Route: 048
     Dates: start: 20111102, end: 20111202

REACTIONS (7)
  - FATIGUE [None]
  - ARRHYTHMIA [None]
  - PRODUCT SUBSTITUTION ISSUE [None]
  - ABDOMINAL DISTENSION [None]
  - GASTROOESOPHAGEAL REFLUX DISEASE [None]
  - ASTHENIA [None]
  - HYPERHIDROSIS [None]
